FAERS Safety Report 7817535-1 (Version None)
Quarter: 2011Q4

REPORT INFORMATION
  Report Type: 
  Country: None (occurrence: None)
  Receive Date: 20111017
  Receipt Date: 20111014
  Transmission Date: 20120403
  Serious: No
  Sender: FDA-Public Use
  Company Number: US-B.I. PHARMACEUTICALS,INC./RIDGEFIELD-2011-BP-24243BP

PATIENT
  Age: 69 Year
  Sex: Male

DRUGS (7)
  1. CLONIDINE [Concomitant]
     Indication: HYPERTENSION
  2. MELOXICAM [Concomitant]
     Indication: BACK PAIN
  3. EXCEDRIN (MIGRAINE) [Concomitant]
     Indication: PAIN
  4. PRADAXA [Suspect]
     Indication: ATRIAL FIBRILLATION
     Dosage: 300 MG
     Route: 048
     Dates: start: 20110701
  5. POTASSIUM [Concomitant]
     Indication: MINERAL SUPPLEMENTATION
  6. FISH OIL [Concomitant]
     Indication: SUPPLEMENTATION THERAPY
  7. FLAX OIL [Concomitant]
     Indication: SUPPLEMENTATION THERAPY

REACTIONS (2)
  - CONTUSION [None]
  - DYSURIA [None]
